FAERS Safety Report 24766285 (Version 5)
Quarter: 2025Q1

REPORT INFORMATION
  Report Type: Spontaneous
  Country: US (occurrence: US)
  Receive Date: 20241223
  Receipt Date: 20250130
  Transmission Date: 20250409
  Serious: No
  Sender: PFIZER
  Company Number: US-PFIZER INC-202400330261

PATIENT
  Age: 50 Year
  Sex: Female

DRUGS (3)
  1. VELSIPITY [Interacting]
     Active Substance: ETRASIMOD ARGININE
     Dosage: 2MG; 1 TABLET EVERY DAY/2MG; 1 TABLET DAILY
  2. LEXAPRO [Interacting]
     Active Substance: ESCITALOPRAM OXALATE
  3. PREDNISONE [Interacting]
     Active Substance: PREDNISONE

REACTIONS (2)
  - Headache [Unknown]
  - Drug interaction [Unknown]
